FAERS Safety Report 7304897-7 (Version None)
Quarter: 2011Q1

REPORT INFORMATION
  Report Type: 
  Country: None (occurrence: None)
  Receive Date: 20110222
  Receipt Date: 20110210
  Transmission Date: 20110831
  Serious: Yes (Hospitalization)
  Sender: FDA-Public Use
  Company Number: DE-ELI_LILLY_AND_COMPANY-DE201102002917

PATIENT
  Age: 70 Year
  Sex: Female

DRUGS (2)
  1. BYETTA [Suspect]
     Dosage: UNK, UNK
     Route: 058
     Dates: start: 20100101
  2. METFORMIN [Concomitant]

REACTIONS (2)
  - PANCREATIC CARCINOMA [None]
  - NERVOUS SYSTEM DISORDER [None]
